FAERS Safety Report 17599836 (Version 1)
Quarter: 2020Q1

REPORT INFORMATION
  Report Type: Spontaneous
  Country: FR (occurrence: FR)
  Receive Date: 20200330
  Receipt Date: 20200330
  Transmission Date: 20200409
  Serious: Yes (Hospitalization)
  Sender: FDA-Public Use
  Company Number: FR-BAUSCH-BL-2020-008985

PATIENT
  Age: 69 Year
  Sex: Male
  Weight: 62 kg

DRUGS (11)
  1. GENTAMICINE [Suspect]
     Active Substance: GENTAMICIN
     Indication: PNEUMONIA
     Route: 042
     Dates: start: 20190105, end: 20190107
  2. VORICONAZOLE ARROW [Suspect]
     Active Substance: VORICONAZOLE
     Indication: PNEUMONIA
     Route: 042
     Dates: start: 20190111, end: 20190118
  3. LINEZOLIDE KABI [Suspect]
     Active Substance: LINEZOLID
     Indication: PNEUMONIA
     Route: 042
     Dates: start: 20190110, end: 20190119
  4. CEFOTAXIME BASE [Suspect]
     Active Substance: CEFOTAXIME SODIUM
     Indication: PNEUMONIA
     Route: 042
     Dates: start: 20190105, end: 20190110
  5. VANCOMYCINE MYLAN [Suspect]
     Active Substance: VANCOMYCIN
     Indication: PNEUMONIA
     Route: 042
     Dates: start: 20190119, end: 20190119
  6. IMIPENEM AND CILASTATIN [Suspect]
     Active Substance: CILASTATIN SODIUM\IMIPENEM
     Indication: PNEUMONIA
     Route: 042
     Dates: start: 20190114, end: 20190128
  7. CIPROFLOXACINE [Suspect]
     Active Substance: CIPROFLOXACIN
     Indication: PNEUMONIA
     Route: 048
     Dates: start: 20190107, end: 20190110
  8. AZACTAM [Suspect]
     Active Substance: AZTREONAM
     Indication: PNEUMONIA
     Dosage: DOSAGE FORM: POWDER AND SOLUTION FOR PARENTERAL USE
     Route: 042
     Dates: start: 20190111, end: 20190112
  9. TYGACIL [Suspect]
     Active Substance: TIGECYCLINE
     Indication: POLYCHONDRITIS
     Route: 042
     Dates: start: 20190304, end: 20190306
  10. LEVOFLOXACINE ARROW [Suspect]
     Active Substance: LEVOFLOXACIN
     Indication: PNEUMONIA
     Route: 042
     Dates: start: 20190111, end: 20190128
  11. METRONIDAZOLE. [Suspect]
     Active Substance: METRONIDAZOLE
     Indication: PNEUMONIA
     Route: 042
     Dates: start: 20190105, end: 20190107

REACTIONS (1)
  - Clostridium difficile colitis [Recovered/Resolved]

NARRATIVE: CASE EVENT DATE: 201903
